FAERS Safety Report 25136027 (Version 2)
Quarter: 2025Q1

REPORT INFORMATION
  Report Type: Spontaneous
  Country: MX (occurrence: MX)
  Receive Date: 20250328
  Receipt Date: 20250328
  Transmission Date: 20250408
  Serious: Yes (Hospitalization, Other)
  Sender: BIOMARIN
  Company Number: MX-SA-2025SA085019

PATIENT

DRUGS (1)
  1. LARONIDASE [Suspect]
     Active Substance: LARONIDASE
     Indication: Mucopolysaccharidosis I
     Route: 042

REACTIONS (1)
  - Cervical cord compression [Unknown]

NARRATIVE: CASE EVENT DATE: 20250201
